FAERS Safety Report 12079814 (Version 3)
Quarter: 2020Q4

REPORT INFORMATION
  Report Type: Spontaneous
  Country: US (occurrence: US)
  Receive Date: 20160216
  Receipt Date: 20201009
  Transmission Date: 20210113
  Serious: Yes (Other)
  Sender: FDA-Public Use
  Company Number: US-RECKITT BENCKISER HEALTHCARE INT LIMITED-RB-81766-2016

PATIENT
  Age: 14 Year
  Sex: Male

DRUGS (1)
  1. CLEARASIL ULTRA RAPID ACTION DAILY FACE WASH [Suspect]
     Active Substance: SALICYLIC ACID
     Indication: PRODUCT USED FOR UNKNOWN INDICATION
     Dosage: UNK, SINGLE
     Route: 065
     Dates: start: 20160204, end: 20160204

REACTIONS (5)
  - Erythema [Unknown]
  - Dry skin [Unknown]
  - Burns first degree [Unknown]
  - Skin exfoliation [Unknown]
  - Swelling face [Not Recovered/Not Resolved]

NARRATIVE: CASE EVENT DATE: 20160204
